FAERS Safety Report 6880589-3 (Version None)
Quarter: 2010Q3

REPORT INFORMATION
  Report Type: 
  Country: None (occurrence: None)
  Receive Date: 20100727
  Receipt Date: 20090918
  Transmission Date: 20110219
  Serious: No
  Sender: FDA-Public Use
  Company Number: A0808548A

PATIENT
  Sex: Female

DRUGS (2)
  1. ZANTAC [Suspect]
  2. OMEPRAZOLE [Suspect]
     Route: 065

REACTIONS (4)
  - CARDIAC DISORDER [None]
  - GASTROOESOPHAGEAL REFLUX DISEASE [None]
  - MICROANGIOPATHY [None]
  - PAIN [None]
